FAERS Safety Report 4591465-3 (Version None)
Quarter: 2005Q1

REPORT INFORMATION
  Report Type: 
  Country: None (occurrence: None)
  Receive Date: 20050222
  Receipt Date: 20050211
  Transmission Date: 20050727
  Serious: Yes (Other)
  Sender: FDA-Public Use
  Company Number: 163-20785-05020292

PATIENT
  Sex: 0

DRUGS (3)
  1. THALOMID [Suspect]
     Indication: NON-SMALL CELL LUNG CANCER
     Dosage: ORAL
     Route: 048
  2. CARBOPLATIN [Suspect]
     Dosage: NON-SMALL CELL LUNG CANCER NOS
  3. PACLITAXEL [Suspect]
     Indication: NON-SMALL CELL LUNG CANCER

REACTIONS (4)
  - PULMONARY EMBOLISM [None]
  - PULMONARY FIBROSIS [None]
  - RADIATION FIBROSIS - LUNG [None]
  - RESPIRATORY FAILURE [None]
